FAERS Safety Report 7448153-5 (Version None)
Quarter: 2011Q2

REPORT INFORMATION
  Report Type: 
  Country: None (occurrence: None)
  Receive Date: 20110429
  Receipt Date: 20100603
  Transmission Date: 20111010
  Serious: No
  Sender: FDA-Public Use
  Company Number: US-ASTRAZENECA-2008UW19442

PATIENT
  Age: 52 Year
  Sex: Female
  Weight: 81.6 kg

DRUGS (4)
  1. PRILOSEC [Suspect]
     Route: 048
  2. NEXIUM [Suspect]
     Dosage: 7 CAPSULES IN 3 DAYS
     Route: 048
     Dates: start: 20100305
  3. NEXIUM [Suspect]
     Indication: GALLBLADDER DISORDER
     Route: 048
     Dates: start: 20070901
  4. NEXIUM [Suspect]
     Route: 048

REACTIONS (4)
  - ABDOMINAL PAIN UPPER [None]
  - ABDOMINAL PAIN [None]
  - DRUG INEFFECTIVE [None]
  - INCORRECT DOSE ADMINISTERED [None]
